FAERS Safety Report 16720140 (Version 1)
Quarter: 2019Q3

REPORT INFORMATION
  Report Type: Spontaneous
  Country: US (occurrence: US)
  Receive Date: 20190820
  Receipt Date: 20190820
  Transmission Date: 20191005
  Serious: No
  Sender: FDA-Public Use
  Company Number: US-PFIZER INC-2019349206

PATIENT
  Sex: Female

DRUGS (1)
  1. PREMARIN [Suspect]
     Active Substance: ESTROGENS, CONJUGATED
     Dosage: UNK

REACTIONS (7)
  - Application site haemorrhage [Unknown]
  - Application site pain [Unknown]
  - Vulvovaginal pain [Unknown]
  - Sexual dysfunction [Unknown]
  - Dysstasia [Unknown]
  - Product complaint [Unknown]
  - Application site laceration [Unknown]
